FAERS Safety Report 4410494-3 (Version None)
Quarter: 2004Q3

REPORT INFORMATION
  Report Type: 
  Country: None (occurrence: None)
  Receive Date: 20040726
  Receipt Date: 20040714
  Transmission Date: 20050211
  Serious: Yes (Other)
  Sender: FDA-Public Use
  Company Number: DE-JNJFOC-20040704121

PATIENT
  Age: 52 Year
  Sex: Male

DRUGS (1)
  1. SEMPERA (ITRACONAZOLE) CAPSULES [Suspect]
     Indication: FUNGAL SKIN INFECTION
     Dosage: ORAL
     Route: 048

REACTIONS (3)
  - ERYTHEMA [None]
  - JOINT SWELLING [None]
  - PERONEAL NERVE PALSY [None]
